FAERS Safety Report 6196799-7 (Version None)
Quarter: 2009Q2

REPORT INFORMATION
  Report Type: 
  Country: None (occurrence: None)
  Receive Date: 20090520
  Receipt Date: 20090513
  Transmission Date: 20091009
  Serious: Yes (Other)
  Sender: FDA-Public Use
  Company Number: PHHY2009MT18445

PATIENT
  Age: 64 Year
  Sex: Female

DRUGS (4)
  1. ZOMETA [Suspect]
     Indication: METASTASES TO BONE
     Dosage: ONE 4 MG INFUSION EVERY 4 WEEKS
     Dates: start: 20090506
  2. DIOVAN [Concomitant]
     Dosage: UNK
  3. PROVERA [Concomitant]
  4. TRAMADOL HCL [Concomitant]
     Dosage: UNK

REACTIONS (2)
  - PULMONARY OEDEMA [None]
  - PYREXIA [None]
